FAERS Safety Report 4876960-1 (Version None)
Quarter: 2006Q1

REPORT INFORMATION
  Report Type: 
  Country: None (occurrence: None)
  Receive Date: 20060110
  Receipt Date: 20060104
  Transmission Date: 20060701
  Serious: Yes (Other)
  Sender: FDA-Public Use
  Company Number: PHEH2006US00527

PATIENT
  Sex: Female

DRUGS (1)
  1. ENABLEX [Suspect]

REACTIONS (4)
  - CORNEAL INFECTION [None]
  - DRY EYE [None]
  - LACRIMATION DECREASED [None]
  - ULCERATIVE KERATITIS [None]
